FAERS Safety Report 23361650 (Version 2)
Quarter: 2024Q1

REPORT INFORMATION
  Report Type: Spontaneous
  Country: CZ (occurrence: CZ)
  Receive Date: 20240103
  Receipt Date: 20240103
  Transmission Date: 20240410
  Serious: Yes (Other)
  Sender: FDA-Public Use
  Company Number: CZ-ALIMERA SCIENCES LIMITED-CZ-A16013-23-000147

PATIENT
  Age: 51 Year
  Sex: Male

DRUGS (1)
  1. ILUVIEN [Suspect]
     Active Substance: FLUOCINOLONE ACETONIDE
     Indication: Uveitis
     Dosage: 0.25 MICROGRAM, QD - LEFT EYE
     Route: 031
     Dates: start: 20220905

REACTIONS (2)
  - Intraocular pressure increased [Recovered/Resolved]
  - Trabeculectomy [Recovered/Resolved]

NARRATIVE: CASE EVENT DATE: 20230404
